FAERS Safety Report 18150968 (Version 12)
Quarter: 2021Q3

REPORT INFORMATION
  Report Type: Spontaneous
  Country: US (occurrence: US)
  Receive Date: 20200814
  Receipt Date: 20210803
  Transmission Date: 20211014
  Serious: Yes (Other)
  Sender: FDA-Public Use
  Company Number: US-PFIZER INC-2018440650

PATIENT
  Age: 4 Month
  Sex: Female
  Weight: 63.33 kg

DRUGS (4)
  1. GENOTROPIN [Suspect]
     Active Substance: SOMATROPIN
     Dosage: 2.2 MG, 1X/DAY (2.2 USED NEEDLES THAT ATTACH ON PEN ONCE A DAY ALTERNATE ON STOMACH ON SIDES)
     Dates: start: 2007
  2. GENOTROPIN [Suspect]
     Active Substance: SOMATROPIN
     Dosage: 2.2 MG, DAILY
  3. GENOTROPIN [Suspect]
     Active Substance: SOMATROPIN
     Indication: HYPOPITUITARISM
     Dosage: 2 MG, 1X/DAY (NIGHTLY)
     Route: 058
     Dates: start: 200610
  4. GENOTROPIN [Suspect]
     Active Substance: SOMATROPIN
     Dosage: 2.4 MG, DAILY

REACTIONS (8)
  - Hypothyroidism [Unknown]
  - Device use error [Unknown]
  - Septo-optic dysplasia [Unknown]
  - Off label use [Unknown]
  - Adrenal insufficiency [Unknown]
  - Device breakage [Unknown]
  - Drug dose omission by device [Unknown]
  - Device operational issue [Unknown]

NARRATIVE: CASE EVENT DATE: 200610
